FAERS Safety Report 7943514-X (Version None)
Quarter: 2011Q4

REPORT INFORMATION
  Report Type: 
  Country: None (occurrence: None)
  Receive Date: 20111128
  Receipt Date: 20111121
  Transmission Date: 20120403
  Serious: Yes (Other)
  Sender: FDA-Public Use
  Company Number: US-US-EMD SERONO, INC.-7095812

PATIENT
  Sex: Female
  Weight: 104 kg

DRUGS (3)
  1. REBIF [Suspect]
     Route: 058
  2. REBIF [Suspect]
     Route: 058
     Dates: end: 20110918
  3. REBIF [Suspect]
     Indication: MULTIPLE SCLEROSIS
     Route: 058
     Dates: start: 20090629, end: 20110101

REACTIONS (2)
  - HERPES ZOSTER [None]
  - WHITE BLOOD CELL COUNT DECREASED [None]
